FAERS Safety Report 18937746 (Version 1)
Quarter: 2021Q1

REPORT INFORMATION
  Report Type: Spontaneous
  Country: US (occurrence: US)
  Receive Date: 20210224
  Receipt Date: 20210224
  Transmission Date: 20210420
  Serious: No
  Sender: FDA-Public Use
  Company Number: None

PATIENT

DRUGS (1)
  1. CARISPORODOL 350 MG TABLETS [Suspect]
     Active Substance: CARISOPRODOL
     Indication: MUSCLE SPASTICITY
     Dosage: ?          QUANTITY:3 DF DOSAGE FORM;?
     Route: 048

REACTIONS (2)
  - Drug ineffective [None]
  - Product substitution issue [None]

NARRATIVE: CASE EVENT DATE: 20210120
